FAERS Safety Report 6080280-X (Version None)
Quarter: 2009Q1

REPORT INFORMATION
  Report Type: 
  Country: None (occurrence: None)
  Receive Date: 20090217
  Receipt Date: 20090209
  Transmission Date: 20090719
  Serious: Yes (Hospitalization)
  Sender: FDA-Public Use
  Company Number: CH-AVENTIS-200911338GDDC

PATIENT
  Age: 87 Year
  Sex: Female
  Weight: 60 kg

DRUGS (7)
  1. AMARYL [Suspect]
     Route: 048
     Dates: start: 20081121, end: 20081201
  2. AMOXICILLIN [Suspect]
     Indication: URINARY TRACT INFECTION
     Route: 048
     Dates: start: 20081127, end: 20081201
  3. GLUCOPHAGE [Concomitant]
     Route: 048
     Dates: start: 20081121, end: 20081203
  4. BELOC                              /00376902/ [Concomitant]
     Dosage: DOSE: UNK
     Route: 048
     Dates: start: 20080101
  5. ARICEPT [Concomitant]
     Route: 048
     Dates: start: 20080101
  6. NORVASC [Concomitant]
     Route: 048
     Dates: start: 20080101
  7. CO-RENITEN [Concomitant]
     Dosage: DOSE: 12.5/20
     Route: 048
     Dates: start: 20080101, end: 20081203

REACTIONS (2)
  - ACUTE GENERALISED EXANTHEMATOUS PUSTULOSIS [None]
  - RENAL TUBULAR DISORDER [None]
